FAERS Safety Report 14093391 (Version 1)
Quarter: 2017Q4

REPORT INFORMATION
  Report Type: Spontaneous
  Country: US (occurrence: US)
  Receive Date: 20171016
  Receipt Date: 20171016
  Transmission Date: 20180321
  Serious: Yes (Other)
  Sender: FDA-Public Use
  Company Number: None

PATIENT
  Sex: Male
  Weight: 85.5 kg

DRUGS (9)
  1. IBUPROPHEN [Concomitant]
     Active Substance: IBUPROFEN
  2. SENNA S [Concomitant]
     Active Substance: DOCUSATE SODIUM\SENNA LEAF
  3. TENS [Concomitant]
  4. LYRICA [Concomitant]
     Active Substance: PREGABALIN
  5. TOPIRAMATE 25MG TABLET [Suspect]
     Active Substance: TOPIRAMATE
     Indication: PAIN
     Dosage: ?          QUANTITY:1 TABLET(S);?
     Route: 048
     Dates: start: 20170501, end: 20170509
  6. NORCO [Concomitant]
     Active Substance: ACETAMINOPHEN\HYDROCODONE BITARTRATE
  7. METHADONE [Concomitant]
     Active Substance: METHADONE HYDROCHLORIDE
  8. LIDODERM [Concomitant]
     Active Substance: LIDOCAINE
  9. SKELAXIN [Concomitant]
     Active Substance: METAXALONE

REACTIONS (5)
  - Renal pain [None]
  - Gastrointestinal disorder [None]
  - Renal mass [None]
  - Blood urine present [None]
  - Lipids increased [None]

NARRATIVE: CASE EVENT DATE: 20170505
